FAERS Safety Report 4827719-2 (Version None)
Quarter: 2005Q4

REPORT INFORMATION
  Report Type: 
  Country: None (occurrence: None)
  Receive Date: 20051114
  Receipt Date: 20050324
  Transmission Date: 20060501
  Serious: Yes (Hospitalization)
  Sender: FDA-Public Use
  Company Number: CH-MERCK-0503USA05173

PATIENT
  Age: 41 Year
  Sex: Male

DRUGS (11)
  1. PRINIVIL [Suspect]
     Route: 048
     Dates: start: 20040510, end: 20050110
  2. PRINZIDE [Suspect]
     Route: 048
     Dates: start: 20050131, end: 20050221
  3. ABILIFY [Suspect]
     Route: 048
     Dates: start: 20041228, end: 20050103
  4. ABILIFY [Suspect]
     Route: 048
     Dates: start: 20050104, end: 20050124
  5. ABILIFY [Suspect]
     Route: 048
     Dates: start: 20050125, end: 20050208
  6. TOPIRAMATE [Suspect]
     Route: 048
     Dates: start: 20050114, end: 20050116
  7. TOPIRAMATE [Suspect]
     Route: 048
     Dates: start: 20050121, end: 20050224
  8. TOPIRAMATE [Suspect]
     Route: 048
     Dates: start: 20050117, end: 20050120
  9. TOPIRAMATE [Suspect]
     Route: 048
     Dates: start: 20050225
  10. AMLODIPINE BESYLATE [Suspect]
     Route: 048
     Dates: start: 20040510
  11. PANTOPRAZOLE [Suspect]
     Route: 048
     Dates: start: 20040802, end: 20050201

REACTIONS (1)
  - DIZZINESS POSTURAL [None]
